FAERS Safety Report 9691690 (Version 1)
Quarter: 2013Q4

REPORT INFORMATION
  Report Type: Spontaneous
  Country: US (occurrence: US)
  Receive Date: 20131115
  Receipt Date: 20131115
  Transmission Date: 20140711
  Serious: Yes (Other)
  Sender: FDA-Public Use
  Company Number: US-009507513-1311USA005531

PATIENT
  Age: 56 Year
  Sex: Female

DRUGS (2)
  1. SINGULAIR [Suspect]
     Indication: MULTIPLE ALLERGIES
     Dosage: UNK
     Route: 065
     Dates: start: 20120901
  2. SINGULAIR [Suspect]
     Indication: ASTHMA

REACTIONS (5)
  - Cough [Unknown]
  - Drug ineffective [Unknown]
  - Product substitution issue [Unknown]
  - Sinus congestion [Unknown]
  - Sinus headache [Unknown]
